FAERS Safety Report 23502717 (Version 1)
Quarter: 2024Q1

REPORT INFORMATION
  Report Type: Spontaneous
  Country: US (occurrence: US)
  Receive Date: 20240208
  Receipt Date: 20240208
  Transmission Date: 20240409
  Serious: No
  Sender: FDA-Public Use
  Company Number: US-INTRA-CELLULAR THERAPIES, INC.-2023ICT00886

PATIENT
  Sex: Female

DRUGS (1)
  1. CAPLYTA [Suspect]
     Active Substance: LUMATEPERONE
     Indication: Bipolar disorder
     Dosage: 42 MG

REACTIONS (6)
  - Illness [Unknown]
  - Hypophagia [Unknown]
  - Presyncope [Unknown]
  - Dizziness postural [Unknown]
  - Headache [Unknown]
  - Vomiting [Unknown]
